FAERS Safety Report 24686526 (Version 3)
Quarter: 2025Q1

REPORT INFORMATION
  Report Type: Spontaneous
  Country: US (occurrence: US)
  Receive Date: 20241202
  Receipt Date: 20250305
  Transmission Date: 20250408
  Serious: No
  Sender: ALEXION PHARMACEUTICALS
  Company Number: US-AstraZeneca-CH-00755971AP

PATIENT

DRUGS (1)
  1. BREZTRI [Suspect]
     Active Substance: BUDESONIDE\FORMOTEROL\GLYCOPYRROLATE
     Dosage: 160 MICROGRAM, BID
     Route: 065

REACTIONS (5)
  - Fear [Unknown]
  - Wrong technique in device usage process [Unknown]
  - Product delivery mechanism issue [Unknown]
  - Device malfunction [Unknown]
  - Incorrect dose administered [Unknown]
